FAERS Safety Report 24648880 (Version 2)
Quarter: 2025Q2

REPORT INFORMATION
  Report Type: Report from Study
  Country: US (occurrence: US)
  Receive Date: 20241121
  Receipt Date: 20250515
  Transmission Date: 20250716
  Serious: Yes (Other)
  Sender: UCB
  Company Number: US-UCBSA-2024059388

PATIENT
  Age: 25 Year
  Sex: Female
  Weight: 101 kg

DRUGS (8)
  1. MIDAZOLAM [Suspect]
     Active Substance: MIDAZOLAM
     Indication: Seizure
     Route: 045
  2. KEPPRA [Suspect]
     Active Substance: LEVETIRACETAM
     Indication: Seizure
     Dosage: 1000 MILLIGRAM, 2X/DAY (BID)
     Route: 048
  3. KEPPRA [Suspect]
     Active Substance: LEVETIRACETAM
     Dosage: 1000 MILLIGRAM, 3X/DAY (TID)
     Route: 048
     Dates: start: 20241001, end: 2024
  4. KEPPRA [Suspect]
     Active Substance: LEVETIRACETAM
     Dosage: 1000 MILLIGRAM, 2X/DAY (BID)
     Route: 048
     Dates: start: 2024
  5. VITAMINS [Concomitant]
     Active Substance: VITAMINS
     Indication: Product used for unknown indication
     Route: 048
  6. .ALPHA.-TOCOPHEROL ACETATE, D-\EVENING PRIMROSE OIL\FISH OIL [Concomitant]
     Active Substance: .ALPHA.-TOCOPHEROL ACETATE, D-\EVENING PRIMROSE OIL\FISH OIL
     Indication: Product used for unknown indication
     Dosage: 250 MILLIGRAM, ONCE DAILY (QD)
     Route: 048
  7. TYLENOL [Concomitant]
     Active Substance: ACETAMINOPHEN
     Indication: Headache
     Route: 048
  8. DEPAKOTE [Concomitant]
     Active Substance: DIVALPROEX SODIUM
     Indication: Myoclonic epilepsy
     Dosage: 500 MILLIGRAM, 2X/DAY (BID)

REACTIONS (7)
  - Generalised tonic-clonic seizure [Unknown]
  - Seizure [Recovered/Resolved]
  - Fatigue [Unknown]
  - Medication overuse headache [Unknown]
  - Maternal exposure during pregnancy [Unknown]
  - Therapy non-responder [Unknown]
  - Inappropriate schedule of product administration [Unknown]

NARRATIVE: CASE EVENT DATE: 20241001
